FAERS Safety Report 4383167-3 (Version None)
Quarter: 2004Q2

REPORT INFORMATION
  Report Type: 
  Country: None (occurrence: None)
  Receive Date: 20040618
  Receipt Date: 20040604
  Transmission Date: 20050107
  Serious: Yes (Other)
  Sender: FDA-Public Use
  Company Number: 2004-06-0264

PATIENT
  Sex: Female

DRUGS (3)
  1. CLARITIN [Suspect]
     Indication: URTICARIA
     Dosage: 10 MG ORAL
     Route: 048
     Dates: start: 20040511, end: 20040603
  2. PREDONINE [Concomitant]
  3. BLOPRESS (CANDESARTAN CILEXETIL) [Concomitant]

REACTIONS (1)
  - DRUG ERUPTION [None]
